FAERS Safety Report 7047545-6 (Version None)
Quarter: 2010Q4

REPORT INFORMATION
  Report Type: 
  Country: None (occurrence: None)
  Receive Date: 20101015
  Receipt Date: 20101005
  Transmission Date: 20110411
  Serious: Yes (Hospitalization, Other)
  Sender: FDA-Public Use
  Company Number: US-PFIZER INC-2010127028

PATIENT
  Sex: Female
  Weight: 81.179 kg

DRUGS (5)
  1. LYRICA [Suspect]
     Indication: ARTHRALGIA
     Dosage: 100 MG, 2X/DAY
     Route: 048
     Dates: start: 20060501, end: 20100101
  2. LYRICA [Suspect]
     Indication: SYSTEMIC LUPUS ERYTHEMATOSUS
  3. LYRICA [Suspect]
     Indication: ARTHRITIS
  4. LYRICA [Suspect]
     Indication: JOINT SWELLING
  5. ACETYLSALICYLIC ACID [Concomitant]
     Dosage: UNK

REACTIONS (8)
  - ARTHRALGIA [None]
  - BLISTER [None]
  - CONVULSION [None]
  - DYSPNOEA [None]
  - HYPERTENSION [None]
  - RASH GENERALISED [None]
  - VISION BLURRED [None]
  - WEIGHT INCREASED [None]
